FAERS Safety Report 23870304 (Version 1)
Quarter: 2024Q2

REPORT INFORMATION
  Report Type: Spontaneous
  Country: CN (occurrence: CN)
  Receive Date: 20240517
  Receipt Date: 20240517
  Transmission Date: 20240716
  Serious: Yes (Hospitalization, Other)
  Sender: FDA-Public Use
  Company Number: CN-TAKEDA-2024TUS047554

PATIENT
  Age: 14 Year
  Sex: Male
  Weight: 56 kg

DRUGS (3)
  1. ADCETRIS [Suspect]
     Active Substance: BRENTUXIMAB VEDOTIN
     Indication: Lymphoma
     Dosage: 100 MILLIGRAM, QD
     Route: 041
     Dates: start: 20240403, end: 20240403
  2. METHOTREXATE [Suspect]
     Active Substance: METHOTREXATE
     Indication: Lymphoma
     Dosage: 3000 MILLIGRAM, QD
     Route: 041
     Dates: start: 20240404, end: 20240406
  3. ETOPOSIDE [Suspect]
     Active Substance: ETOPOSIDE
     Indication: Lymphoma
     Dosage: 0.1 GRAM, QD
     Route: 041
     Dates: start: 20240404, end: 20240404

REACTIONS (1)
  - Myelosuppression [Unknown]

NARRATIVE: CASE EVENT DATE: 20240409
